FAERS Safety Report 4370055-1 (Version None)
Quarter: 2004Q2

REPORT INFORMATION
  Report Type: 
  Country: None (occurrence: None)
  Receive Date: 20040527
  Receipt Date: 20040518
  Transmission Date: 20050107
  Serious: Yes (Hospitalization)
  Sender: FDA-Public Use
  Company Number: 2004PK00893

PATIENT
  Age: 75 Year
  Sex: Female
  Weight: 66 kg

DRUGS (1)
  1. NOLVADEX [Suspect]
     Indication: BREAST CANCER
     Dosage: 20 MG DAILY, PO
     Route: 048
     Dates: start: 20020425

REACTIONS (2)
  - ENDOMETRIAL ATROPHY [None]
  - UTERINE SYNECHIAE [None]
